FAERS Safety Report 18805986 (Version 1)
Quarter: 2021Q1

REPORT INFORMATION
  Report Type: Spontaneous
  Country: NL (occurrence: NL)
  Receive Date: 20210129
  Receipt Date: 20210129
  Transmission Date: 20210419
  Serious: Yes (Other)
  Sender: FDA-Public Use
  Company Number: NL-TEVA-2021-NL-1873273

PATIENT
  Sex: Female
  Weight: 120 kg

DRUGS (6)
  1. CLOMIPRAMINE TABLET MGA 75MG / BRAND NAME NOT SPECIFIED [Suspect]
     Active Substance: CLOMIPRAMINE
     Indication: DEPRESSION
     Dosage: 1X DAILY 2 TABLETS, 150 MG, THERAPY END DATE : ASKED BUT UNKNOWN
     Dates: start: 2013
  2. TOPIRAMAAT TABLET OMHULD 100MG / BRAND NAME NOT SPECIFIED [Suspect]
     Active Substance: TOPIRAMATE
     Indication: POST-TRAUMATIC STRESS DISORDER
  3. TOPIRAMAAT TABLET OMHULD 50MG / BRAND NAME NOT SPECIFIED [Suspect]
     Active Substance: TOPIRAMATE
     Indication: DISSOCIATIVE DISORDER
  4. CLOMIPRAMINE TABLET MGA 75MG / BRAND NAME NOT SPECIFIED [Suspect]
     Active Substance: CLOMIPRAMINE
     Indication: POST-TRAUMATIC STRESS DISORDER
  5. TOPIRAMAAT TABLET OMHULD 100MG / BRAND NAME NOT SPECIFIED [Suspect]
     Active Substance: TOPIRAMATE
     Indication: DISSOCIATIVE DISORDER
     Dosage: 100 MILLIGRAM DAILY; THERAPY END DATE: ASKED BUT UNKNOWN
     Dates: start: 2018
  6. TOPIRAMAAT TABLET OMHULD 50MG / BRAND NAME NOT SPECIFIED [Suspect]
     Active Substance: TOPIRAMATE
     Indication: POST-TRAUMATIC STRESS DISORDER
     Dosage: 50 MILLIGRAM DAILY; THERAPY END DATE: ASKED BUT UNKNOWN
     Dates: start: 2018

REACTIONS (7)
  - Headache [Unknown]
  - Acromegaly [Unknown]
  - Liver function test increased [Unknown]
  - Suicide attempt [Unknown]
  - Weight increased [Unknown]
  - Paraesthesia [Not Recovered/Not Resolved]
  - Face oedema [Unknown]
